FAERS Safety Report 8117179-0 (Version None)
Quarter: 2012Q1

REPORT INFORMATION
  Report Type: 
  Country: None (occurrence: None)
  Receive Date: 20120206
  Receipt Date: 20120203
  Transmission Date: 20120608
  Serious: No
  Sender: FDA-Public Use
  Company Number: US-PFIZER INC-2012030873

PATIENT
  Age: 18 Year
  Sex: Male

DRUGS (1)
  1. IBUPROFEN (ADVIL) [Suspect]
     Dosage: UNK

REACTIONS (2)
  - SENSATION OF FOREIGN BODY [None]
  - CHEST PAIN [None]
